FAERS Safety Report 6930082-4 (Version None)
Quarter: 2010Q3

REPORT INFORMATION
  Report Type: 
  Country: None (occurrence: None)
  Receive Date: 20100818
  Receipt Date: 20100812
  Transmission Date: 20110219
  Serious: Yes (Other)
  Sender: FDA-Public Use
  Company Number: US-BAYER-201030440NA

PATIENT
  Age: 66 Year
  Sex: Male

DRUGS (5)
  1. SOTALOL HCL [Suspect]
     Indication: ATRIAL FIBRILLATION
     Route: 048
  2. PLAVIX [Suspect]
     Indication: CEREBROVASCULAR ACCIDENT
     Route: 048
     Dates: start: 20090101, end: 20100721
  3. LIPITOR [Concomitant]
  4. GEMFIBROZIL [Concomitant]
  5. MAGNESIUM [Concomitant]

REACTIONS (2)
  - ATRIAL FIBRILLATION [None]
  - FATIGUE [None]
